FAERS Safety Report 4514931-5 (Version None)
Quarter: 2004Q4

REPORT INFORMATION
  Report Type: 
  Country: None (occurrence: None)
  Receive Date: 20041129
  Receipt Date: 20041129
  Transmission Date: 20050328
  Serious: No
  Sender: FDA-Public Use
  Company Number: None

PATIENT
  Sex: Male
  Weight: 60.9181 kg

DRUGS (10)
  1. CLONAZEPAM [Suspect]
     Indication: INSOMNIA
     Dosage: 1MG  QHS  ORAL
     Route: 048
     Dates: start: 20040210, end: 20040429
  2. CLONAZEPAM [Suspect]
     Indication: NIGHTMARE
     Dosage: 1MG  QHS  ORAL
     Route: 048
     Dates: start: 20040210, end: 20040429
  3. CLONAZEPAM [Suspect]
     Indication: POST-TRAUMATIC STRESS DISORDER
     Dosage: 1MG  QHS  ORAL
     Route: 048
     Dates: start: 20040210, end: 20040429
  4. FLUTICASONE PROP [Concomitant]
  5. LORATADINE [Concomitant]
  6. METOPROLOL TARTRATE [Concomitant]
  7. NITROGLYCERIN [Concomitant]
  8. OMEPRAZOLE [Concomitant]
  9. SIMVASTATIN [Concomitant]
  10. VITAMIN E [Concomitant]

REACTIONS (2)
  - DIPLOPIA [None]
  - TUNNEL VISION [None]
